FAERS Safety Report 18515254 (Version 1)
Quarter: 2020Q4

REPORT INFORMATION
  Report Type: Spontaneous
  Country: DE (occurrence: DE)
  Receive Date: 20201118
  Receipt Date: 20201118
  Transmission Date: 20210114
  Serious: Yes (Hospitalization)
  Sender: FDA-Public Use
  Company Number: DE-TEVA-2020-DE-1848652

PATIENT
  Age: 48 Year
  Sex: Male

DRUGS (10)
  1. CABAZITAXEL [Suspect]
     Active Substance: CABAZITAXEL
     Dosage: FIRST GIFT ON 14-08-2020
  2. MACROGOL [Concomitant]
     Active Substance: POLYETHYLENE GLYCOLS
     Dosage: 1 DOSAGE FORMS DAILY; 1-0-0-0
  3. METAMIZOL [Concomitant]
     Active Substance: METAMIZOLE SODIUM
     Dosage: 40-40-40-40, DROPS
  4. LACTULOSE. [Concomitant]
     Active Substance: LACTULOSE
     Dosage: 10 MILLIGRAM DAILY;  1-0-0-0
  5. PREDNISOLON [Suspect]
     Active Substance: PREDNISOLONE
     Dosage: 10 MILLIGRAM DAILY;  1-0-0-0
  6. PANTOPRAZOL [Concomitant]
     Active Substance: PANTOPRAZOLE SODIUM
     Dosage: 80 MILLIGRAM DAILY;  1-0-1-0
  7. HYDROMORPHON [Concomitant]
     Active Substance: HYDROMORPHONE
     Dosage: 4 DOSAGE FORMS DAILY; 8 MG, 2-0-2-0
  8. FOLSAURE [Concomitant]
     Active Substance: FOLIC ACID
     Dosage: 5 MILLIGRAM DAILY;  1-0-0-0
  9. CARVEDILOL. [Concomitant]
     Active Substance: CARVEDILOL
     Dosage: 25 MILLIGRAM DAILY;  1-0-1-0
  10. ASS 100 [Concomitant]
     Active Substance: ASPIRIN
     Dosage: 100 MILLIGRAM DAILY;  1-0-0-0

REACTIONS (4)
  - Flank pain [Unknown]
  - Abdominal tenderness [Unknown]
  - Abdominal pain [Unknown]
  - Dysuria [Unknown]
